FAERS Safety Report 6926175-8 (Version None)
Quarter: 2010Q3

REPORT INFORMATION
  Report Type: 
  Country: None (occurrence: None)
  Receive Date: 20100816
  Receipt Date: 20100628
  Transmission Date: 20110219
  Serious: Yes (Other)
  Sender: FDA-Public Use
  Company Number: FI-PFIZER INC-2010086275

PATIENT
  Age: 25 Year
  Sex: Male

DRUGS (2)
  1. LYRICA [Suspect]
     Indication: PAIN
     Dosage: 75MG-150MG 1-2 TIMES DAILY
     Dates: start: 20051227
  2. BURANA [Concomitant]
     Dosage: 600 MG ONCE DAILY

REACTIONS (1)
  - BLOOD HOMOCYSTEINE INCREASED [None]
